FAERS Safety Report 12863888 (Version 1)
Quarter: 2016Q4

REPORT INFORMATION
  Report Type: Spontaneous
  Country: US (occurrence: US)
  Receive Date: 20161019
  Receipt Date: 20161019
  Transmission Date: 20170207
  Serious: No
  Sender: FDA-Public Use
  Company Number: US-GILEAD-2016-0238738

PATIENT
  Sex: Male

DRUGS (1)
  1. VIREAD [Suspect]
     Active Substance: TENOFOVIR DISOPROXIL FUMARATE

REACTIONS (6)
  - Night sweats [Unknown]
  - Pharyngeal oedema [Unknown]
  - Irritability [Unknown]
  - Dysphagia [Unknown]
  - Lymphadenopathy [Unknown]
  - Fatigue [Unknown]
